FAERS Safety Report 16867367 (Version 1)
Quarter: 2019Q4

REPORT INFORMATION
  Report Type: Spontaneous
  Country: US (occurrence: US)
  Receive Date: 20190929
  Receipt Date: 20190929
  Transmission Date: 20200122
  Serious: No
  Sender: FDA-Public Use
  Company Number: None

PATIENT
  Age: 53 Year
  Sex: Female
  Weight: 82.8 kg

DRUGS (4)
  1. MUPIROCIN OINTMENT, USP 2% PERRIGO [Suspect]
     Active Substance: MUPIROCIN
     Indication: IMPETIGO
     Dosage: ?          QUANTITY:1 APPLICATION;?
     Route: 061
     Dates: start: 20190927, end: 20190929
  2. CORTISONE 10 CREAM [Concomitant]
  3. NEOSPORIN [Concomitant]
     Active Substance: BACITRACIN ZINC\NEOMYCIN SULFATE\POLYMYXIN B SULFATE
  4. LEVOTHYROXINE. [Concomitant]
     Active Substance: LEVOTHYROXINE

REACTIONS (5)
  - Application site erythema [None]
  - Application site pain [None]
  - Application site pruritus [None]
  - Application site swelling [None]
  - Application site vesicles [None]

NARRATIVE: CASE EVENT DATE: 20190928
